FAERS Safety Report 7141899-8 (Version None)
Quarter: 2010Q4

REPORT INFORMATION
  Report Type: 
  Country: None (occurrence: None)
  Receive Date: 20101207
  Receipt Date: 20040818
  Transmission Date: 20110411
  Serious: Yes (Other)
  Sender: FDA-Public Use
  Company Number: NL-ROCHE-746315

PATIENT

DRUGS (1)
  1. XELODA [Suspect]
     Route: 048

REACTIONS (1)
  - DISEASE PROGRESSION [None]
